FAERS Safety Report 8247465-5 (Version None)
Quarter: 2012Q1

REPORT INFORMATION
  Report Type: 
  Country: None (occurrence: None)
  Receive Date: 20120330
  Receipt Date: 20120319
  Transmission Date: 20120608
  Serious: Yes (Hospitalization)
  Sender: FDA-Public Use
  Company Number: FR-UCBSA-053690

PATIENT
  Age: 52 Year
  Sex: Male

DRUGS (4)
  1. HYDROCORTISONE [Concomitant]
     Route: 042
     Dates: start: 20111122
  2. NEXIUM [Concomitant]
     Route: 042
     Dates: start: 20111122, end: 20120102
  3. KEPPRA [Suspect]
     Indication: PROPHYLAXIS
     Dosage: 100 MG/ML
     Route: 042
     Dates: start: 20111122, end: 20120101
  4. LOVENOX [Concomitant]
     Route: 058
     Dates: start: 20111125

REACTIONS (2)
  - OVERDOSE [None]
  - THROMBOCYTOPENIA [None]
